FAERS Safety Report 7866258-1 (Version None)
Quarter: 2011Q4

REPORT INFORMATION
  Report Type: 
  Country: None (occurrence: None)
  Receive Date: 20111028
  Receipt Date: 20110519
  Transmission Date: 20120403
  Serious: No
  Sender: FDA-Public Use
  Company Number: US-GLAXOSMITHKLINE-A0928043A

PATIENT
  Age: 82 Year
  Sex: Female

DRUGS (5)
  1. LEVOTHYROXINE SODIUM [Concomitant]
  2. LIPITOR [Concomitant]
  3. ADVAIR DISKUS 100/50 [Suspect]
     Route: 055
  4. ADVAIR DISKUS 100/50 [Suspect]
     Indication: ASTHMA
     Route: 055
  5. DIOVAN [Concomitant]

REACTIONS (3)
  - APHTHOUS STOMATITIS [None]
  - APHONIA [None]
  - DYSPHONIA [None]
